FAERS Safety Report 9846156 (Version 2)
Quarter: 2014Q1

REPORT INFORMATION
  Report Type: Spontaneous
  Country: FR (occurrence: FR)
  Receive Date: 20140127
  Receipt Date: 20140314
  Transmission Date: 20141002
  Serious: Yes (Hospitalization)
  Sender: FDA-Public Use
  Company Number: FR-WATSON-2013-24684

PATIENT
  Age: 39 Year
  Sex: Male

DRUGS (7)
  1. GABAPENTINE [Suspect]
     Indication: PRODUCT USED FOR UNKNOWN INDICATION
     Dosage: 100 MG, UNK
     Route: 048
     Dates: start: 20130803, end: 20130807
  2. AMOXICILLINE/ACIDE CLAVULANIQUE [Suspect]
     Indication: PRODUCT USED FOR UNKNOWN INDICATION
     Dosage: 1G / 125 MG THREE TIMES DAILY
     Route: 048
     Dates: start: 20130801, end: 20130807
  3. AMOXICILLINE/ACIDE CLAVULANIQUE BIOGARAN [Suspect]
     Indication: PRODUCT USED FOR UNKNOWN INDICATION
     Dosage: 1G / 125 MG
     Route: 048
     Dates: start: 20130807, end: 20130807
  4. DOLIPRANE [Suspect]
     Indication: PRODUCT USED FOR UNKNOWN INDICATION
     Dosage: UNK, UNKNOWN
     Route: 048
     Dates: start: 20130802, end: 20130808
  5. TRAMADOL BIOGARAN [Suspect]
     Indication: PRODUCT USED FOR UNKNOWN INDICATION
     Dosage: UNK, UNKNOWN
     Route: 048
     Dates: start: 20130807, end: 20130808
  6. TOPALGIC LP [Suspect]
     Indication: PRODUCT USED FOR UNKNOWN INDICATION
     Dosage: 100 MG PR TABLET
     Route: 048
     Dates: start: 20130801, end: 20130807
  7. ACUPAN [Suspect]
     Indication: PRODUCT USED FOR UNKNOWN INDICATION
     Dosage: UNK, UNKNOWN
     Route: 065
     Dates: start: 20130802, end: 20130807

REACTIONS (3)
  - Rash pustular [Recovered/Resolved]
  - Blepharitis [Recovered/Resolved]
  - Cheilitis [Recovered/Resolved]
